FAERS Safety Report 14870553 (Version 7)
Quarter: 2018Q4

REPORT INFORMATION
  Report Type: Spontaneous
  Country: US (occurrence: US)
  Receive Date: 20180509
  Receipt Date: 20181009
  Transmission Date: 20190204
  Serious: No
  Sender: FDA-Public Use
  Company Number: US-PFIZER INC-2018092001

PATIENT
  Age: 54 Year
  Sex: Male
  Weight: 78 kg

DRUGS (4)
  1. IBRANCE [Suspect]
     Active Substance: PALBOCICLIB
     Indication: CHORDOMA
     Dosage: UNK
     Dates: start: 20180330, end: 2018
  2. XARELTO [Concomitant]
     Active Substance: RIVAROXABAN
     Indication: COAGULOPATHY
     Dosage: 20 MG, DAILY
     Route: 048
  3. GABAPENTIN. [Concomitant]
     Active Substance: GABAPENTIN
     Indication: NEURALGIA
     Dosage: 900 MG, DAILY
     Route: 048
  4. IBRANCE [Suspect]
     Active Substance: PALBOCICLIB
     Dosage: 125 MG, CYCLIC (DAILY FOR 3 WEEKS ON 1 WEEK OFF )
     Route: 048
     Dates: start: 201804

REACTIONS (5)
  - Product use in unapproved indication [Unknown]
  - White blood cell count decreased [Unknown]
  - Immune system disorder [Unknown]
  - Blood disorder [Unknown]
  - Neoplasm progression [Unknown]

NARRATIVE: CASE EVENT DATE: 2018
